FAERS Safety Report 10716622 (Version 1)
Quarter: 2015Q1

REPORT INFORMATION
  Report Type: Spontaneous
  Country: US (occurrence: None)
  Receive Date: 20150115
  Receipt Date: 20150115
  Transmission Date: 20150721
  Serious: No
  Sender: FDA-Public Use
  Company Number: None

PATIENT
  Age: 68 Year
  Sex: Male
  Weight: 87.54 kg

DRUGS (1)
  1. POLYMYXIN [Suspect]
     Active Substance: POLYMYXIN
     Indication: CONJUNCTIVITIS
     Dosage: 1 DROP IN EYE ONCE DAILY
     Route: 047

REACTIONS (1)
  - Erythema [None]

NARRATIVE: CASE EVENT DATE: 20140101
